FAERS Safety Report 11352180 (Version 2)
Quarter: 2015Q3

REPORT INFORMATION
  Report Type: Spontaneous
  Country: US (occurrence: US)
  Receive Date: 20150807
  Receipt Date: 20150812
  Transmission Date: 20151125
  Serious: Yes (Hospitalization, Other)
  Sender: FDA-Public Use
  Company Number: US-PFIZER INC-2015257087

PATIENT
  Age: 47 Year
  Sex: Female

DRUGS (2)
  1. PHENOBARBITAL. [Suspect]
     Active Substance: PHENOBARBITAL
     Indication: EPILEPSY
     Dosage: 100 MG, 3X/DAY
  2. DILANTIN [Suspect]
     Active Substance: PHENYTOIN
     Indication: EPILEPSY
     Dosage: 100 MG, 3X/DAY

REACTIONS (11)
  - Dysarthria [Unknown]
  - Lymphadenopathy [Unknown]
  - Ataxia [Unknown]
  - Hypersensitivity [Unknown]
  - Lymphocytic infiltration [Unknown]
  - Lethargy [Unknown]
  - Hepatic failure [Unknown]
  - Anaemia megaloblastic [Unknown]
  - Dysphagia [Unknown]
  - Renal failure [Unknown]
  - Pyrexia [Unknown]
